FAERS Safety Report 8518985-0 (Version None)
Quarter: 2012Q3

REPORT INFORMATION
  Report Type: 
  Country: None (occurrence: None)
  Receive Date: 20120718
  Receipt Date: 20120706
  Transmission Date: 20120928
  Serious: Yes (Hospitalization)
  Sender: FDA-Public Use
  Company Number: US-ACTELION-A-US2012-66480

PATIENT

DRUGS (2)
  1. ADCIRCA [Concomitant]
  2. EPOPROSTENOL SODIUM [Suspect]
     Indication: PULMONARY ARTERIAL HYPERTENSION
     Dosage: 20 NG/KG, PER MIN
     Route: 042
     Dates: start: 20120101

REACTIONS (3)
  - FLUID RETENTION [None]
  - PULMONARY ARTERIAL HYPERTENSION [None]
  - CLOSTRIDIAL INFECTION [None]
